FAERS Safety Report 7413677-3 (Version None)
Quarter: 2011Q2

REPORT INFORMATION
  Report Type: 
  Country: None (occurrence: None)
  Receive Date: 20110413
  Receipt Date: 20110412
  Transmission Date: 20111010
  Serious: Yes (Hospitalization)
  Sender: FDA-Public Use
  Company Number: US-BAYER-2011-031905

PATIENT
  Age: 59 Year
  Sex: Female

DRUGS (2)
  1. INTERFERON BETA-1B [Suspect]
     Dosage: UNK
     Dates: start: 20070801, end: 20110301
  2. INTERFERON BETA-1B [Suspect]
     Indication: PRIMARY PROGRESSIVE MULTIPLE SCLEROSIS
     Dosage: UNK
     Dates: start: 19991201, end: 20070725

REACTIONS (3)
  - DISORIENTATION [None]
  - FEELING ABNORMAL [None]
  - SPEECH DISORDER [None]
